FAERS Safety Report 12549009 (Version 4)
Quarter: 2016Q4

REPORT INFORMATION
  Report Type: Spontaneous
  Country: JP (occurrence: JP)
  Receive Date: 20160712
  Receipt Date: 20161017
  Transmission Date: 20170207
  Serious: Yes (Death, Hospitalization)
  Sender: FDA-Public Use
  Company Number: JP-PFIZER INC-2016165184

PATIENT
  Age: 78 Year
  Sex: Male
  Weight: 52 kg

DRUGS (3)
  1. SUTENT [Suspect]
     Active Substance: SUNITINIB MALATE
     Dosage: 37.5 MG, 1X/DAY
     Route: 048
     Dates: start: 20151210, end: 20151224
  2. SUTENT [Suspect]
     Active Substance: SUNITINIB MALATE
     Dosage: 37.5 MG, 1X/DAY
     Route: 048
     Dates: start: 20160317, end: 20160330
  3. SUTENT [Suspect]
     Active Substance: SUNITINIB MALATE
     Indication: GASTROINTESTINAL STROMAL TUMOUR
     Dosage: 37.5 MG, 1X/DAY
     Route: 048
     Dates: start: 20151112, end: 20151126

REACTIONS (4)
  - Neoplasm progression [Fatal]
  - Pyrexia [Not Recovered/Not Resolved]
  - Infection [Unknown]
  - Jaundice cholestatic [Fatal]

NARRATIVE: CASE EVENT DATE: 20151125
